FAERS Safety Report 6656733-X (Version None)
Quarter: 2010Q1

REPORT INFORMATION
  Report Type: 
  Country: None (occurrence: None)
  Receive Date: 20100329
  Receipt Date: 20090914
  Transmission Date: 20100710
  Serious: No
  Sender: FDA-Public Use
  Company Number: US-BAUSCH-2009BL004660

PATIENT
  Age: 64 Year
  Sex: Female

DRUGS (5)
  1. POLYMYXIN B SULFATES AND TRIMETHOPRIM SULFATE [Suspect]
     Indication: CORNEAL ABRASION
     Route: 047
     Dates: start: 20090911, end: 20090912
  2. MULTI-VITAMINS [Concomitant]
  3. VITAMIN E [Concomitant]
  4. CALCIUM [Concomitant]
  5. GLUCOSAMINE W/CHONDROITIN [Concomitant]

REACTIONS (6)
  - CONJUNCTIVAL OEDEMA [None]
  - DRUG HYPERSENSITIVITY [None]
  - ERYTHEMA OF EYELID [None]
  - EYE PRURITUS [None]
  - LACRIMATION INCREASED [None]
  - OCULAR HYPERAEMIA [None]
